FAERS Safety Report 21835002 (Version 1)
Quarter: 2023Q1

REPORT INFORMATION
  Report Type: Report from Study
  Country: US (occurrence: US)
  Receive Date: 20230109
  Receipt Date: 20230109
  Transmission Date: 20230418
  Serious: Yes (Hospitalization)
  Sender: FDA-Public Use
  Company Number: US-ABBVIE-4259608

PATIENT
  Sex: Male

DRUGS (1)
  1. IMBRUVICA [Suspect]
     Active Substance: IBRUTINIB
     Indication: Chronic lymphocytic leukaemia
     Route: 048
     Dates: start: 20211220

REACTIONS (6)
  - COVID-19 [Unknown]
  - Viral infection [Unknown]
  - Muscle spasms [Unknown]
  - Myalgia [Unknown]
  - Pancreatitis viral [Unknown]
  - Vomiting [Unknown]
